FAERS Safety Report 6213958-5 (Version None)
Quarter: 2009Q2

REPORT INFORMATION
  Report Type: 
  Country: None (occurrence: None)
  Receive Date: 20090601
  Receipt Date: 20090601
  Transmission Date: 20091009
  Serious: Yes (Other)
  Sender: FDA-Public Use
  Company Number: None

PATIENT
  Sex: Female
  Weight: 66.6788 kg

DRUGS (1)
  1. DIVALPROEX SODIUM EXTENDED RELEASE [Suspect]
     Indication: SCHIZOAFFECTIVE DISORDER
     Dosage: 1000 MG DAILY AT BEDTIME PO }THAN CURRENT ADMISSION
     Route: 048
     Dates: start: 20090417, end: 20090528

REACTIONS (1)
  - HYPERAMMONAEMIA [None]
